FAERS Safety Report 5448225-0 (Version None)
Quarter: 2007Q3

REPORT INFORMATION
  Report Type: 
  Country: None (occurrence: None)
  Receive Date: 20070906
  Receipt Date: 20070828
  Transmission Date: 20080115
  Serious: Yes (Death, Other)
  Sender: FDA-Public Use
  Company Number: 2007SP016693

PATIENT
  Age: 15 Year
  Sex: Male

DRUGS (2)
  1. TEMODAL [Suspect]
     Indication: METASTASIS
  2. TEMODAL [Suspect]
     Indication: SARCOMA

REACTIONS (2)
  - BLINDNESS [None]
  - VISUAL FIELD DEFECT [None]
